FAERS Safety Report 4284779-8 (Version None)
Quarter: 2004Q1

REPORT INFORMATION
  Report Type: 
  Country: None (occurrence: None)
  Receive Date: 20040202
  Receipt Date: 20040122
  Transmission Date: 20041129
  Serious: Yes (Other)
  Sender: FDA-Public Use
  Company Number: AU-JNJFOC-20040104974

PATIENT
  Sex: Male

DRUGS (2)
  1. RISPERDAL [Suspect]
  2. MIRTAZAPINE [Suspect]

REACTIONS (3)
  - ANTIPHOSPHOLIPID ANTIBODIES POSITIVE [None]
  - DRUG INTERACTION [None]
  - PROTEIN TOTAL DECREASED [None]
